FAERS Safety Report 6621399-1 (Version None)
Quarter: 2010Q1

REPORT INFORMATION
  Report Type: 
  Country: None (occurrence: None)
  Receive Date: 20100309
  Receipt Date: 20100210
  Transmission Date: 20100710
  Serious: No
  Sender: FDA-Public Use
  Company Number: US-BIOGENIDEC-2010BI004640

PATIENT
  Age: 45 Year
  Sex: Male

DRUGS (1)
  1. AVONEX [Suspect]
     Indication: MULTIPLE SCLEROSIS
     Route: 030
     Dates: start: 20091001, end: 20100204

REACTIONS (10)
  - BALANCE DISORDER [None]
  - DRUG INEFFECTIVE [None]
  - DRUG INTOLERANCE [None]
  - HYPOAESTHESIA [None]
  - INSOMNIA [None]
  - MUSCULAR WEAKNESS [None]
  - MYALGIA [None]
  - PAIN [None]
  - TREMOR [None]
  - VISION BLURRED [None]
